FAERS Safety Report 8237244-7 (Version None)
Quarter: 2012Q1

REPORT INFORMATION
  Report Type: 
  Country: None (occurrence: None)
  Receive Date: 20120327
  Receipt Date: 20120319
  Transmission Date: 20120608
  Serious: Yes (Hospitalization, Other)
  Sender: FDA-Public Use
  Company Number: US-BAYER-201035808NA

PATIENT
  Age: 26 Year
  Sex: Female
  Weight: 117.91 kg

DRUGS (2)
  1. MEDROXYPROGESTERONE [Concomitant]
  2. YASMIN [Suspect]
     Dosage: UNK UNK, UNK
     Route: 048
     Dates: start: 20040801, end: 20040924

REACTIONS (7)
  - MATERNAL DRUGS AFFECTING FOETUS [None]
  - HEADACHE [None]
  - PULMONARY EMBOLISM [None]
  - ABORTION SPONTANEOUS [None]
  - HAEMATOCHEZIA [None]
  - PAIN IN EXTREMITY [None]
  - HABITUAL ABORTION [None]
